FAERS Safety Report 12089473 (Version 2)
Quarter: 2016Q1

REPORT INFORMATION
  Report Type: Report from Study
  Country: US (occurrence: US)
  Receive Date: 20160218
  Receipt Date: 20160311
  Transmission Date: 20160526
  Serious: Yes (Hospitalization, Other)
  Sender: FDA-Public Use
  Company Number: US-ARIAD PHARMACEUTICALS, INC-2016US006116

PATIENT
  Sex: Male
  Weight: 56.69 kg

DRUGS (3)
  1. ICLUSIG [Suspect]
     Active Substance: PONATINIB
     Dosage: 15 UNK, UNK
     Route: 048
     Dates: start: 20160215
  2. ICLUSIG [Suspect]
     Active Substance: PONATINIB
     Dosage: 15 UNK, UNK
     Route: 048
  3. ICLUSIG [Suspect]
     Active Substance: PONATINIB
     Indication: ACUTE LYMPHOCYTIC LEUKAEMIA
     Dosage: 30 MG, QD
     Route: 048
     Dates: start: 20160114

REACTIONS (4)
  - Renal failure [Unknown]
  - Acute sinusitis [Unknown]
  - Dehydration [Unknown]
  - Malnutrition [Unknown]
